FAERS Safety Report 18624316 (Version 6)
Quarter: 2021Q3

REPORT INFORMATION
  Report Type: Spontaneous
  Country: US (occurrence: US)
  Receive Date: 20201216
  Receipt Date: 20210713
  Transmission Date: 20211014
  Serious: Yes (Hospitalization, Other)
  Sender: FDA-Public Use
  Company Number: US-PFIZER INC-2020429464

PATIENT
  Age: 79 Year
  Sex: Female
  Weight: 58.97 kg

DRUGS (2)
  1. BRAFTOVI [Suspect]
     Active Substance: ENCORAFENIB
     Dosage: 300 MG
  2. MEKTOVI [Suspect]
     Active Substance: BINIMETINIB
     Indication: NEOPLASM MALIGNANT
     Dosage: 45 MG, 2X/DAY (3 IN THE MORNING)

REACTIONS (13)
  - Nausea [Unknown]
  - Blood potassium decreased [Unknown]
  - Blood magnesium decreased [Unknown]
  - Decreased appetite [Unknown]
  - Malaise [Unknown]
  - Vomiting [Unknown]
  - Taste disorder [Unknown]
  - Fatigue [Unknown]
  - Insomnia [Unknown]
  - Weight decreased [Unknown]
  - Syncope [Recovering/Resolving]
  - Nervousness [Unknown]
  - Diarrhoea [Unknown]
